FAERS Safety Report 9681787 (Version 1)
Quarter: 2013Q4

REPORT INFORMATION
  Report Type: Spontaneous
  Country: US (occurrence: US)
  Receive Date: 20131111
  Receipt Date: 20131111
  Transmission Date: 20140711
  Serious: Yes (Other)
  Sender: FDA-Public Use
  Company Number: US-PFIZER INC-2013320022

PATIENT
  Sex: Female

DRUGS (2)
  1. DILANTIN-125 [Suspect]
     Indication: CONVULSION
     Dosage: UNK
  2. POTASSIUM [Concomitant]
     Dosage: 20 MEQ, 2X/DAY
     Route: 048

REACTIONS (3)
  - Mental impairment [Unknown]
  - Balance disorder [Unknown]
  - Gait disturbance [Unknown]
